FAERS Safety Report 19036093 (Version 2)
Quarter: 2021Q2

REPORT INFORMATION
  Report Type: Spontaneous
  Country: US (occurrence: US)
  Receive Date: 20210321
  Receipt Date: 20210505
  Transmission Date: 20210717
  Serious: No
  Sender: FDA-Public Use
  Company Number: US-ASTRAZENECA-2021A135915

PATIENT
  Age: 933 Month
  Sex: Female

DRUGS (1)
  1. BYDUREON [Suspect]
     Active Substance: EXENATIDE
     Indication: DIABETES MELLITUS
     Dosage: 2.0MG UNKNOWN
     Route: 065
     Dates: start: 202002, end: 202103

REACTIONS (4)
  - Injection site haemorrhage [Unknown]
  - Product physical issue [Recovered/Resolved]
  - Injection site pain [Unknown]
  - Incorrect dose administered by device [Unknown]

NARRATIVE: CASE EVENT DATE: 202011
